FAERS Safety Report 21264142 (Version 1)
Quarter: 2022Q3

REPORT INFORMATION
  Report Type: Other
  Country: US (occurrence: None)
  Receive Date: 20220829
  Receipt Date: 20220829
  Transmission Date: 20221026
  Serious: Yes (Other)
  Sender: FDA-Public Use
  Company Number: US-ROCHE-3166485

PATIENT
  Sex: Male

DRUGS (5)
  1. OCREVUS [Suspect]
     Active Substance: OCRELIZUMAB
     Indication: Multiple sclerosis
     Route: 065
  2. CYMBALTA [Concomitant]
     Active Substance: DULOXETINE HYDROCHLORIDE
  3. SIMVASTATIN [Concomitant]
     Active Substance: SIMVASTATIN
  4. METOPROLOL [Concomitant]
     Active Substance: METOPROLOL
  5. FENOFIBRATE [Concomitant]
     Active Substance: FENOFIBRATE

REACTIONS (4)
  - Burning sensation [Unknown]
  - Multiple sclerosis [Unknown]
  - Fall [Unknown]
  - Heart rate irregular [Unknown]
